FAERS Safety Report 24539971 (Version 1)
Quarter: 2024Q4

REPORT INFORMATION
  Report Type: Spontaneous
  Country: US (occurrence: None)
  Receive Date: 20241022
  Receipt Date: 20241022
  Transmission Date: 20250115
  Serious: Yes (Other)
  Sender: Public
  Company Number: None

PATIENT
  Age: 83 Year
  Sex: Female
  Weight: 32.2 kg

DRUGS (2)
  1. ORSERDU [Suspect]
     Active Substance: ELACESTRANT
     Indication: Breast cancer female
     Dosage: FREQUENCY : DAILY;?
     Route: 048
     Dates: start: 20241015, end: 20241022
  2. ORSERDU [Suspect]
     Active Substance: ELACESTRANT
     Indication: Oestrogen receptor assay

REACTIONS (3)
  - Gastrooesophageal reflux disease [None]
  - Nausea [None]
  - Drug intolerance [None]

NARRATIVE: CASE EVENT DATE: 20241022
